FAERS Safety Report 7966262-9 (Version None)
Quarter: 2011Q4

REPORT INFORMATION
  Report Type: 
  Country: None (occurrence: None)
  Receive Date: 20111208
  Receipt Date: 20111202
  Transmission Date: 20120403
  Serious: Yes (Other)
  Sender: FDA-Public Use
  Company Number: PHHY2011VE08933

PATIENT
  Sex: Female

DRUGS (6)
  1. ZOLEDRONOC ACID [Suspect]
     Indication: OSTEOPOROSIS
     Dosage: 5 MG
     Route: 042
     Dates: start: 20090123
  2. ALTACE [Concomitant]
     Indication: HYPERTENSION
     Dosage: 5 MG, UNK
  3. INDAPAMIDE [Concomitant]
     Indication: HYPERTENSION
     Dosage: 1.5 MG, UNK
     Dates: start: 20100101
  4. ZOLEDRONOC ACID [Suspect]
     Dosage: 5 MG
     Route: 042
     Dates: start: 20100125
  5. ZOLEDRONOC ACID [Suspect]
     Dosage: 5 MG
     Route: 042
     Dates: start: 20110727
  6. GLUCOFAGE [Concomitant]
     Indication: HYPERGLYCAEMIA
     Dosage: 500 MG, UNK
     Dates: start: 20100101

REACTIONS (3)
  - HERPES ZOSTER [None]
  - STRESS [None]
  - BLOOD DISORDER [None]
